FAERS Safety Report 5133326-7 (Version None)
Quarter: 2006Q4

REPORT INFORMATION
  Report Type: 
  Country: None (occurrence: None)
  Receive Date: 20060831
  Receipt Date: 20060706
  Transmission Date: 20070319
  Serious: No
  Sender: FDA-Public Use
  Company Number: 2006-BP-07156BP

PATIENT
  Age: 70 Year
  Sex: Female
  Weight: 84.82 kg

DRUGS (2)
  1. SPIRIVA [Suspect]
     Dosage: (18 MCG),IH
  2. ALBUTEROL [Suspect]

REACTIONS (1)
  - SWELLING FACE [None]
